FAERS Safety Report 5801722-8 (Version None)
Quarter: 2008Q3

REPORT INFORMATION
  Report Type: 
  Country: None (occurrence: None)
  Receive Date: 20080707
  Receipt Date: 20080626
  Transmission Date: 20090109
  Serious: Yes (Hospitalization)
  Sender: FDA-Public Use
  Company Number: B0527597A

PATIENT
  Age: 36 Year
  Sex: Male

DRUGS (7)
  1. METHADON HCL TAB [Suspect]
     Indication: SUBSTANCE ABUSE
     Dosage: 190MG PER DAY
     Route: 048
  2. PAROXETINE HCL [Suspect]
     Indication: ANXIETY DISORDER
     Dosage: 60MG PER DAY
     Route: 065
  3. TRAZODONE HCL [Suspect]
     Indication: ANXIETY DISORDER
     Dosage: 300MG PER DAY
     Route: 065
  4. OXAZEPAM [Concomitant]
     Dosage: 250MG PER DAY
     Route: 065
  5. MARCUMAR [Concomitant]
     Route: 048
  6. MIDAZOLAM HCL [Concomitant]
     Dosage: 30MG PER DAY
     Route: 065
     Dates: start: 20080507, end: 20080507
  7. RIVOTRIL [Concomitant]
     Route: 048
     Dates: start: 20080507, end: 20080507

REACTIONS (3)
  - BRADYPNOEA [None]
  - SINUS BRADYCARDIA [None]
  - SOMNOLENCE [None]
